FAERS Safety Report 7121709-5 (Version None)
Quarter: 2010Q4

REPORT INFORMATION
  Report Type: 
  Country: None (occurrence: None)
  Receive Date: 20101122
  Receipt Date: 20101122
  Transmission Date: 20110411
  Serious: Yes (Life-Threatening)
  Sender: FDA-Public Use
  Company Number: None

PATIENT
  Age: 65 Year
  Sex: Male
  Weight: 99.7913 kg

DRUGS (1)
  1. NIASPAN [Suspect]
     Indication: ATHEROSCLEROSIS PROPHYLAXIS
     Dosage: 500 MG AT BEDTIME PO MANY YEARS
     Route: 048

REACTIONS (8)
  - APHONIA [None]
  - BURNING SENSATION [None]
  - DIZZINESS [None]
  - HEAD INJURY [None]
  - INCORRECT DRUG ADMINISTRATION RATE [None]
  - LOSS OF CONSCIOUSNESS [None]
  - PRODUCT QUALITY ISSUE [None]
  - PRURITUS [None]
